FAERS Safety Report 23158770 (Version 1)
Quarter: 2023Q4

REPORT INFORMATION
  Report Type: Report from Study
  Country: US (occurrence: US)
  Receive Date: 20231108
  Receipt Date: 20231108
  Transmission Date: 20240109
  Serious: Yes (Other)
  Sender: FDA-Public Use
  Company Number: US-MYLANLABS-2023M1117925

PATIENT
  Sex: Female

DRUGS (3)
  1. XANAX [Suspect]
     Active Substance: ALPRAZOLAM
     Indication: Product used for unknown indication
     Dosage: 50 GRAM, QD (DAILY)
     Route: 065
  2. PRECEDEX [Concomitant]
     Active Substance: DEXMEDETOMIDINE HYDROCHLORIDE
     Indication: Sedative therapy
     Dosage: 1MG/KG FOR 5 DAYS
     Route: 042
  3. VALIUM [Concomitant]
     Active Substance: DIAZEPAM
     Indication: Sedative therapy
     Dosage: 50 GRAM, QD
     Route: 065

REACTIONS (4)
  - Cardiac arrest [Unknown]
  - Respiratory failure [Unknown]
  - Retrograde amnesia [Unknown]
  - Incorrect dose administered [Unknown]
